FAERS Safety Report 8562963 (Version 2)
Quarter: 2012Q4

REPORT INFORMATION
  Report Type: 
  Country: US (occurrence: US)
  Receive Date: 20120515
  Receipt Date: 20121017
  Transmission Date: 20130627
  Serious: Yes (Hospitalization)
  Sender: FDA-Public Use
  Company Number: US-ABBOTT-12P-163-0933476-00

PATIENT
  Sex: Female
  Weight: 48.12 kg

DRUGS (1)
  1. LUPRON DEPOT 3.75 MG [Suspect]
     Indication: ENDOMETRIOSIS
     Dates: start: 201204

REACTIONS (2)
  - Psychotic disorder [Not Recovered/Not Resolved]
  - Catatonia [Not Recovered/Not Resolved]
